FAERS Safety Report 9392179 (Version 3)
Quarter: 2013Q4

REPORT INFORMATION
  Report Type: Spontaneous
  Country: JP (occurrence: JP)
  Receive Date: 20130710
  Receipt Date: 20131003
  Transmission Date: 20140711
  Serious: Yes (Other)
  Sender: FDA-Public Use
  Company Number: JP-ROCHE-1240529

PATIENT
  Age: 79 Year
  Sex: Female
  Weight: 45 kg

DRUGS (8)
  1. MIRCERA [Suspect]
     Indication: NEPHROGENIC ANAEMIA
     Route: 058
     Dates: start: 20121106
  2. MIRCERA [Suspect]
     Route: 058
     Dates: start: 20130415
  3. MIRCERA [Suspect]
     Route: 058
     Dates: start: 20130430
  4. DIOVAN [Concomitant]
     Indication: HYPERTENSION
     Route: 048
  5. FEBURIC [Concomitant]
     Indication: HYPERURICAEMIA
     Route: 048
  6. KREMEZIN [Concomitant]
     Indication: RENAL FAILURE
     Route: 048
  7. MEVALOTIN [Concomitant]
     Indication: HYPERLIPIDAEMIA
     Route: 048
  8. FUROSEMIDE [Concomitant]
     Indication: HYPERTENSION
     Route: 048

REACTIONS (3)
  - Azotaemia [Unknown]
  - Haemoglobin decreased [Recovering/Resolving]
  - Renal failure [Unknown]
